FAERS Safety Report 16990446 (Version 1)
Quarter: 2019Q4

REPORT INFORMATION
  Report Type: Spontaneous
  Country: US (occurrence: US)
  Receive Date: 20191102
  Receipt Date: 20191102
  Transmission Date: 20200122
  Serious: No
  Sender: FDA-Public Use
  Company Number: None

PATIENT
  Age: 56 Year
  Sex: Female
  Weight: 79.65 kg

DRUGS (1)
  1. ISOVUE [Suspect]
     Active Substance: IOPAMIDOL
     Indication: ABDOMINAL PAIN LOWER
     Route: 042

REACTIONS (3)
  - Scan with contrast [None]
  - Vomiting [None]
  - Presyncope [None]

NARRATIVE: CASE EVENT DATE: 20191021
